FAERS Safety Report 5426030-9 (Version None)
Quarter: 2007Q3

REPORT INFORMATION
  Report Type: 
  Country: None (occurrence: None)
  Receive Date: 20070824
  Receipt Date: 20070824
  Transmission Date: 20080115
  Serious: Yes (Other)
  Sender: FDA-Public Use
  Company Number: None

PATIENT
  Sex: Female
  Weight: 63.5036 kg

DRUGS (7)
  1. NASONEX [Suspect]
     Indication: HYPERSENSITIVITY
     Dosage: 2 SPRAYS TWICE A DAY NOSE
     Route: 045
     Dates: start: 20060501, end: 20070601
  2. NASONEX [Suspect]
     Indication: SINUS DISORDER
     Dosage: 2 SPRAYS TWICE A DAY NOSE
     Route: 045
     Dates: start: 20060501, end: 20070601
  3. SYNTHROID [Concomitant]
  4. VASAFEM [Concomitant]
  5. ALBUTEROL [Concomitant]
  6. ATROVENT [Concomitant]
  7. ASTELIN [Concomitant]

REACTIONS (4)
  - MIGRAINE [None]
  - NAUSEA [None]
  - OSTEOPOROSIS [None]
  - VOMITING [None]
